FAERS Safety Report 24007855 (Version 3)
Quarter: 2024Q3

REPORT INFORMATION
  Report Type: Spontaneous
  Country: US (occurrence: US)
  Receive Date: 20240625
  Receipt Date: 20240807
  Transmission Date: 20241017
  Serious: Yes (Other)
  Sender: MALLINCKRODT
  Company Number: US-MALLINCKRODT-MNK202403892

PATIENT
  Age: 85 Year
  Sex: Female
  Weight: 126 kg

DRUGS (14)
  1. CORTICOTROPIN [Suspect]
     Active Substance: CORTICOTROPIN
     Indication: Osteoporosis
     Route: 058
     Dates: start: 202403, end: 2024
  2. CORTICOTROPIN [Suspect]
     Active Substance: CORTICOTROPIN
     Indication: Senile osteoporosis
  3. CORTICOTROPIN [Suspect]
     Active Substance: CORTICOTROPIN
     Indication: Felty^s syndrome
  4. PREDNISONE [Concomitant]
     Active Substance: PREDNISONE
  5. NITROFURANTOIN [Concomitant]
     Active Substance: NITROFURANTOIN
  6. LANTUS [Concomitant]
     Active Substance: INSULIN GLARGINE
     Dosage: 100/ML VIAL
  7. TERIPARATIDE [Concomitant]
     Active Substance: TERIPARATIDE
     Dosage: UNKNOWN
  8. OXYCODONE HYDROCHLORIDE [Concomitant]
     Active Substance: OXYCODONE HYDROCHLORIDE
     Dosage: UNKNOWN
  9. METFORMIN HYDROCHLORIDE [Concomitant]
     Active Substance: METFORMIN HYDROCHLORIDE
  10. GLIMEPIRIDE [Concomitant]
     Active Substance: GLIMEPIRIDE
  11. CARVEDILOL [Concomitant]
     Active Substance: CARVEDILOL
  12. ENALAPRIL MALEATE [Concomitant]
     Active Substance: ENALAPRIL MALEATE
  13. AMLODIPINE BESYLATE [Concomitant]
     Active Substance: AMLODIPINE BESYLATE
  14. RESTASIS [Concomitant]
     Active Substance: CYCLOSPORINE

REACTIONS (7)
  - Diabetes mellitus [Not Recovered/Not Resolved]
  - Spinal operation [Unknown]
  - Blood pressure abnormal [Unknown]
  - Fatigue [Unknown]
  - Contraindicated product administered [Unknown]
  - Off label use [Unknown]
  - Therapy interrupted [None]

NARRATIVE: CASE EVENT DATE: 20240101
